FAERS Safety Report 5114417-3 (Version None)
Quarter: 2006Q3

REPORT INFORMATION
  Report Type: 
  Country: None (occurrence: None)
  Receive Date: 20060731
  Receipt Date: 20060530
  Transmission Date: 20061208
  Serious: No
  Sender: FDA-Public Use
  Company Number: 2006PV014681

PATIENT
  Age: 57 Year
  Sex: Male
  Weight: 88.905 kg

DRUGS (7)
  1. BYETTA [Suspect]
     Indication: DIABETES MELLITUS NON-INSULIN-DEPENDENT
     Dosage: 5 MCG;BID;SC
     Route: 058
     Dates: start: 20060524
  2. GLYBURIDE AND METFORMIN HCL [Concomitant]
  3. ACTOS /USA/ [Concomitant]
  4. TIMOLOL MALEATE [Concomitant]
  5. ALPHAGAN [Concomitant]
  6. XALATAN [Concomitant]
  7. TRUSOPT [Concomitant]

REACTIONS (3)
  - ANOREXIA [None]
  - DRUG INEFFECTIVE FOR UNAPPROVED INDICATION [None]
  - HYPOGLYCAEMIA [None]
